FAERS Safety Report 6960537-8 (Version None)
Quarter: 2010Q3

REPORT INFORMATION
  Report Type: 
  Country: None (occurrence: None)
  Receive Date: 20100901
  Receipt Date: 20100820
  Transmission Date: 20110219
  Serious: Yes (Hospitalization, Other)
  Sender: FDA-Public Use
  Company Number: US-JNJFOC-20100807601

PATIENT
  Sex: Female

DRUGS (3)
  1. LEVAQUIN [Suspect]
     Indication: PRODUCT USED FOR UNKNOWN INDICATION
     Route: 065
  2. PREDNISONE [Suspect]
     Indication: PRODUCT USED FOR UNKNOWN INDICATION
     Route: 065
  3. DIOVAN [Concomitant]
     Indication: BLOOD PRESSURE
     Route: 065

REACTIONS (8)
  - BLOOD PRESSURE INCREASED [None]
  - DEPRESSION [None]
  - HYPERSENSITIVITY [None]
  - INSOMNIA [None]
  - NERVOUSNESS [None]
  - RASH [None]
  - SURGERY [None]
  - UNEVALUABLE EVENT [None]
